FAERS Safety Report 18625992 (Version 1)
Quarter: 2020Q4

REPORT INFORMATION
  Report Type: Spontaneous
  Country: FR (occurrence: FR)
  Receive Date: 20201216
  Receipt Date: 20201216
  Transmission Date: 20210114
  Serious: Yes (Hospitalization, Other)
  Sender: FDA-Public Use
  Company Number: FR-SA-2020SA353498

PATIENT

DRUGS (1)
  1. ENOXAPARIN SODIUM. [Suspect]
     Active Substance: ENOXAPARIN SODIUM
     Indication: ANTICOAGULANT THERAPY

REACTIONS (9)
  - Disseminated intravascular coagulation [Recovered/Resolved]
  - Heparin-induced thrombocytopenia test positive [Recovered/Resolved]
  - Rectal haemorrhage [Recovered/Resolved]
  - Petechiae [Recovered/Resolved]
  - Livedo reticularis [Recovered/Resolved]
  - Condition aggravated [Recovered/Resolved]
  - Cholangitis acute [Recovered/Resolved]
  - Autoimmune heparin-induced thrombocytopenia [Recovered/Resolved]
  - Platelet count decreased [Recovered/Resolved]
